FAERS Safety Report 8371148-4 (Version None)
Quarter: 2012Q2

REPORT INFORMATION
  Report Type: 
  Country: None (occurrence: None)
  Receive Date: 20120518
  Receipt Date: 20120515
  Transmission Date: 20120825
  Serious: Yes (Other)
  Sender: FDA-Public Use
  Company Number: CH-BAYER-2012-047231

PATIENT
  Age: 66 Year
  Sex: Female

DRUGS (1)
  1. ULTRAVIST 150 [Suspect]
     Dosage: 1 DF, ONCE
     Route: 051
     Dates: start: 20120405, end: 20120405

REACTIONS (5)
  - TYPE I HYPERSENSITIVITY [None]
  - ANAPHYLACTIC SHOCK [None]
  - RESPIRATORY FAILURE [None]
  - LOSS OF CONSCIOUSNESS [None]
  - HYPOTENSION [None]
